FAERS Safety Report 9218886 (Version 1)
Quarter: 2013Q2

REPORT INFORMATION
  Report Type: Spontaneous
  Country: IN (occurrence: IN)
  Receive Date: 20130409
  Receipt Date: 20130409
  Transmission Date: 20140414
  Serious: Yes (Other)
  Sender: FDA-Public Use
  Company Number: IN-JNJFOC-20130400476

PATIENT
  Sex: 0

DRUGS (1)
  1. DUROGESIC [Suspect]
     Indication: CANCER PAIN
     Route: 062

REACTIONS (4)
  - Drug ineffective [Unknown]
  - Product quality issue [Unknown]
  - Product quality issue [Unknown]
  - Poor quality drug administered [Unknown]
